FAERS Safety Report 5486316-9 (Version None)
Quarter: 2007Q4

REPORT INFORMATION
  Report Type: 
  Country: None (occurrence: None)
  Receive Date: 20071016
  Receipt Date: 20071005
  Transmission Date: 20080405
  Serious: Yes (Other)
  Sender: FDA-Public Use
  Company Number: PHHO2007BR16526

PATIENT
  Age: 72 Year
  Sex: Female

DRUGS (6)
  1. DIOVAN [Suspect]
     Dosage: 160 MG, QD
     Route: 048
     Dates: start: 20070928, end: 20070928
  2. ATENOLOL [Concomitant]
     Indication: HYPERTENSION
  3. MODURETIC 5-50 [Concomitant]
     Indication: HYPERTENSION
  4. ADALAT - SLOW RELEASE [Concomitant]
     Indication: HYPERTENSION
  5. TRANQUINAL [Concomitant]
  6. SIMVASTATIN [Concomitant]

REACTIONS (7)
  - ANXIETY [None]
  - BLOOD PRESSURE INCREASED [None]
  - DYSGEUSIA [None]
  - INSOMNIA [None]
  - LIMB DISCOMFORT [None]
  - MEDICATION ERROR [None]
  - PALPITATIONS [None]
